FAERS Safety Report 22595567 (Version 1)
Quarter: 2023Q2

REPORT INFORMATION
  Report Type: Spontaneous
  Country: US (occurrence: US)
  Receive Date: 20230613
  Receipt Date: 20230613
  Transmission Date: 20230721
  Serious: Yes (Other)
  Sender: FDA-Public Use
  Company Number: US-ELI_LILLY_AND_COMPANY-US202306004189

PATIENT
  Sex: Male

DRUGS (2)
  1. MOUNJARO [Suspect]
     Active Substance: TIRZEPATIDE
     Indication: Diabetes mellitus
     Dosage: 2.5 MG, UNKNOWN
     Route: 065
     Dates: start: 20230516
  2. METFORMIN [Concomitant]
     Active Substance: METFORMIN HYDROCHLORIDE
     Indication: Diabetes mellitus
     Dosage: 500 MG, DAILY
     Route: 065

REACTIONS (12)
  - Syncope [Unknown]
  - Head injury [Unknown]
  - Joint injury [Unknown]
  - Weight decreased [Unknown]
  - Mobility decreased [Unknown]
  - Hyperhidrosis [Unknown]
  - Feeling abnormal [Unknown]
  - Dizziness [Unknown]
  - Hiccups [Not Recovered/Not Resolved]
  - Nausea [Unknown]
  - Abdominal distension [Not Recovered/Not Resolved]
  - Decreased appetite [Unknown]
